FAERS Safety Report 5137843-5 (Version None)
Quarter: 2006Q4

REPORT INFORMATION
  Report Type: 
  Country: None (occurrence: None)
  Receive Date: 20061030
  Receipt Date: 20060124
  Transmission Date: 20070319
  Serious: No
  Sender: FDA-Public Use
  Company Number: US-GLAXOSMITHKLINE-A0590725A

PATIENT
  Age: 65 Year
  Sex: Male

DRUGS (6)
  1. ADVAIR HFA [Suspect]
     Dosage: 2PUFF TWICE PER DAY
     Route: 055
  2. THEOPHYLLINE [Concomitant]
  3. PREDNISONE TAB [Concomitant]
  4. SPIRIVA [Concomitant]
  5. QVAR 40 [Concomitant]
  6. LEVOTHYROXINE SODIUM [Concomitant]

REACTIONS (3)
  - DYSPNOEA [None]
  - OVERDOSE [None]
  - OXYGEN SATURATION DECREASED [None]
